FAERS Safety Report 5604787-1 (Version None)
Quarter: 2008Q1

REPORT INFORMATION
  Report Type: 
  Country: None (occurrence: None)
  Receive Date: 20080128
  Receipt Date: 20080116
  Transmission Date: 20080703
  Serious: Yes (Other)
  Sender: FDA-Public Use
  Company Number: FR-ROCHE-542025

PATIENT
  Age: 70 Year
  Sex: Female

DRUGS (4)
  1. BONIVA [Suspect]
     Indication: OSTEOPOROSIS POSTMENOPAUSAL
     Route: 065
     Dates: start: 20070405, end: 20071001
  2. FENOFIBRATE [Concomitant]
     Dates: end: 20071001
  3. NEXIUM [Concomitant]
     Dates: end: 20071001
  4. STRUCTUM [Concomitant]
     Dates: end: 20071001

REACTIONS (1)
  - HEPATITIS [None]
